FAERS Safety Report 25913069 (Version 1)
Quarter: 2025Q4

REPORT INFORMATION
  Report Type: Spontaneous
  Country: EU (occurrence: EU)
  Receive Date: 20251013
  Receipt Date: 20251013
  Transmission Date: 20260117
  Serious: Yes (Hospitalization, Other)
  Sender: MYLAN
  Company Number: None

PATIENT
  Age: 74 Year
  Sex: Male

DRUGS (4)
  1. TRAMADOL [Suspect]
     Active Substance: TRAMADOL
     Indication: Pain
     Dosage: UNK
     Dates: start: 20101118, end: 20250910
  2. PREGABALIN [Suspect]
     Active Substance: PREGABALIN
     Indication: Pain
     Dosage: UNK
     Dates: start: 20101118, end: 20250910
  3. OXYCODONE [Suspect]
     Active Substance: OXYCODONE
     Indication: Pain
     Dosage: UNK
     Dates: start: 20101118, end: 20250910
  4. DIAZEPAM [Suspect]
     Active Substance: DIAZEPAM
     Indication: Pain
     Dosage: UNK
     Dates: start: 20101118, end: 20250910

REACTIONS (7)
  - Drug use disorder [Not Recovered/Not Resolved]
  - Acute respiratory distress syndrome [Recovered/Resolved]
  - General physical health deterioration [Recovered/Resolved]
  - Delusional disorder, unspecified type [Recovered/Resolved]
  - Coma [Recovered/Resolved]
  - Pneumonia [Recovered/Resolved]
  - Somnolence [Recovered/Resolved]

NARRATIVE: CASE EVENT DATE: 20110912
